FAERS Safety Report 7276900-4 (Version None)
Quarter: 2011Q1

REPORT INFORMATION
  Report Type: 
  Country: None (occurrence: None)
  Receive Date: 20110207
  Receipt Date: 20110125
  Transmission Date: 20110831
  Serious: No
  Sender: FDA-Public Use
  Company Number: US-BIOGENIDEC-2010BI041150

PATIENT
  Age: 39 Year
  Sex: Female

DRUGS (2)
  1. AVONEX [Concomitant]
     Indication: MULTIPLE SCLEROSIS
     Route: 030
  2. TYSABRI [Suspect]
     Indication: MULTIPLE SCLEROSIS
     Route: 042
     Dates: start: 20100915

REACTIONS (16)
  - DYSPHAGIA [None]
  - OROPHARYNGEAL PAIN [None]
  - MIGRAINE [None]
  - CHEST PAIN [None]
  - FATIGUE [None]
  - FACIAL PAIN [None]
  - NAUSEA [None]
  - WHEEZING [None]
  - HEADACHE [None]
  - DIARRHOEA [None]
  - COUGH [None]
  - ABDOMINAL DISCOMFORT [None]
  - INSOMNIA [None]
  - PHOTOPHOBIA [None]
  - GENERAL SYMPTOM [None]
  - DIZZINESS [None]
